FAERS Safety Report 9935589 (Version 3)
Quarter: 2018Q1

REPORT INFORMATION
  Report Type: Spontaneous
  Country: JP (occurrence: JP)
  Receive Date: 20140228
  Receipt Date: 20180316
  Transmission Date: 20180509
  Serious: Yes (Hospitalization, Other)
  Sender: FDA-Public Use
  Company Number: ALCN2014JP001308

PATIENT
  Age: 82 Year
  Sex: Male

DRUGS (6)
  1. NEVANAC [Suspect]
     Active Substance: NEPAFENAC
     Indication: POSTOPERATIVE CARE
     Dosage: 1 GTT, QID
     Route: 047
     Dates: start: 20130328, end: 20130411
  2. NEVANAC [Suspect]
     Active Substance: NEPAFENAC
     Indication: CATARACT OPERATION
     Dosage: 1 GTT, QID
     Route: 047
     Dates: start: 20130402, end: 201304
  3. VIGAMOX [Suspect]
     Active Substance: MOXIFLOXACIN HYDROCHLORIDE
     Indication: POSTOPERATIVE CARE
     Dosage: 1 GTT, QID
     Route: 047
     Dates: start: 20130327, end: 201304
  4. VIGAMOX [Suspect]
     Active Substance: MOXIFLOXACIN HYDROCHLORIDE
     Dosage: 1 GTT, QID
     Route: 047
     Dates: start: 20130401, end: 201304
  5. BETAMETHASONE. [Suspect]
     Active Substance: BETAMETHASONE
     Dosage: 1 GTT, QID
     Route: 047
     Dates: start: 20130403, end: 201304
  6. BETAMETHASONE. [Suspect]
     Active Substance: BETAMETHASONE
     Indication: POSTOPERATIVE CARE
     Dosage: 1 GTT, QID
     Route: 047
     Dates: start: 20130329, end: 201304

REACTIONS (4)
  - Iris incarceration [Recovered/Resolved]
  - Corneal perforation [Recovering/Resolving]
  - Flat anterior chamber of eye [Recovered/Resolved]
  - Visual acuity reduced [Recovered/Resolved]

NARRATIVE: CASE EVENT DATE: 20130408
